FAERS Safety Report 9742807 (Version 1)
Quarter: 2013Q4

REPORT INFORMATION
  Report Type: Spontaneous
  Country: FR (occurrence: FR)
  Receive Date: 20131210
  Receipt Date: 20131210
  Transmission Date: 20140711
  Serious: Yes (Hospitalization)
  Sender: FDA-Public Use
  Company Number: FR-PFIZER INC-2013345424

PATIENT
  Age: 24 Year
  Sex: Female

DRUGS (2)
  1. SALAZOPYRINE [Suspect]
     Indication: RHEUMATIC DISORDER
     Dosage: 6 DF, DAILY
     Route: 048
     Dates: start: 200811, end: 20090221
  2. IMUREL [Concomitant]
     Indication: RHEUMATIC DISORDER
     Dosage: 150 MG, DAILY
     Dates: start: 200901

REACTIONS (3)
  - Pleural effusion [Recovered/Resolved]
  - Eosinophilia [Recovered/Resolved]
  - Chest pain [Unknown]
